FAERS Safety Report 9908968 (Version 3)
Quarter: 2014Q1

REPORT INFORMATION
  Report Type: Report from Study
  Country: US (occurrence: US)
  Receive Date: 20140219
  Receipt Date: 20140312
  Transmission Date: 20141002
  Serious: No
  Sender: FDA-Public Use
  Company Number: US-VERTEX PHARMACEUTICALS INC-2014-000649

PATIENT
  Age: 24 Year
  Sex: Male
  Weight: 54.88 kg

DRUGS (3)
  1. VX-950 (TELAPREVIR) [Suspect]
     Indication: HEPATITIS C
     Dosage: 2 DF, TID
     Dates: start: 20140201, end: 20140202
  2. COPEGUS [Suspect]
     Indication: HEPATITIS C
     Dosage: 1000 MG, QD
     Route: 048
     Dates: start: 20140201, end: 20140202
  3. PEGASYS [Suspect]
     Indication: HEPATITIS C
     Dosage: 180 ?G, QW
     Route: 058
     Dates: start: 20140201, end: 20140202

REACTIONS (4)
  - Weight increased [Unknown]
  - Rash generalised [Not Recovered/Not Resolved]
  - Vomiting [Recovered/Resolved]
  - Pruritus [Recovered/Resolved]
